FAERS Safety Report 6148947-2 (Version None)
Quarter: 2009Q2

REPORT INFORMATION
  Report Type: 
  Country: None (occurrence: None)
  Receive Date: 20090406
  Receipt Date: 20090325
  Transmission Date: 20091009
  Serious: Yes (Death)
  Sender: FDA-Public Use
  Company Number: SPV1-2009-00276

PATIENT
  Age: 50 Year
  Sex: Male

DRUGS (2)
  1. ANAGRELIDE HYDROCHLORIDE [Suspect]
     Indication: THROMBOCYTHAEMIA
     Dosage: 0.5 MG, 1X/DAY:QD, ORAL
     Route: 048
     Dates: start: 20000801
  2. ACETYLSALICYLIC ACID SRT [Concomitant]

REACTIONS (1)
  - NEOPLASM PROSTATE [None]
